FAERS Safety Report 4644131-X (Version None)
Quarter: 2005Q2

REPORT INFORMATION
  Report Type: 
  Country: None (occurrence: None)
  Receive Date: 20050425
  Receipt Date: 20050221
  Transmission Date: 20051028
  Serious: Yes (Hospitalization)
  Sender: FDA-Public Use
  Company Number: JP-GLAXOSMITHKLINE-B0372894A

PATIENT
  Age: 74 Year
  Sex: Female
  Weight: 55 kg

DRUGS (9)
  1. ZOVIRAX [Suspect]
     Indication: HERPES ZOSTER
     Dosage: 250MG THREE TIMES PER DAY
     Route: 042
     Dates: start: 20050218, end: 20050219
  2. VALTREX [Suspect]
     Indication: HERPES ZOSTER
     Dosage: 1000MG THREE TIMES PER DAY
     Route: 048
     Dates: start: 20050217, end: 20050217
  3. LOXONIN [Suspect]
     Indication: HERPES ZOSTER
     Dosage: 60MG THREE TIMES PER DAY
     Route: 048
     Dates: start: 20050218, end: 20050219
  4. CYANOCOBALAMIN [Concomitant]
     Indication: NEUROPATHY PERIPHERAL
     Dosage: 1500MCG PER DAY
     Route: 048
     Dates: start: 20050218
  5. MUCOSTA [Concomitant]
     Indication: GASTRITIS
     Dosage: 1U THREE TIMES PER DAY
     Route: 048
     Dates: start: 20050218
  6. VASOLAN [Concomitant]
     Indication: ANGINA PECTORIS
     Dosage: 3U PER DAY
     Route: 048
     Dates: start: 19890101
  7. ALINAMIN-F [Concomitant]
     Indication: ANGINA PECTORIS
     Dosage: 2U PER DAY
     Route: 048
     Dates: start: 19890101
  8. ITOROL [Concomitant]
     Indication: ANGINA PECTORIS
     Dosage: 2U PER DAY
     Route: 048
     Dates: start: 19890101
  9. CONIEL [Concomitant]
     Indication: ANGINA PECTORIS
     Dosage: 2U PER DAY
     Route: 048
     Dates: start: 19890101

REACTIONS (14)
  - ABASIA [None]
  - BLOOD CREATININE INCREASED [None]
  - BLOOD UREA INCREASED [None]
  - DECREASED APPETITE [None]
  - DEHYDRATION [None]
  - DIFFICULTY IN WALKING [None]
  - DISORIENTATION [None]
  - HEADACHE [None]
  - NAUSEA [None]
  - RENAL FAILURE [None]
  - RENAL FAILURE ACUTE [None]
  - URINARY CASTS [None]
  - VIRAL INFECTION [None]
  - VOMITING [None]
